FAERS Safety Report 22143673 (Version 1)
Quarter: 2023Q1

REPORT INFORMATION
  Report Type: Spontaneous
  Country: AU (occurrence: AU)
  Receive Date: 20230327
  Receipt Date: 20230327
  Transmission Date: 20230418
  Serious: Yes (Other)
  Sender: FDA-Public Use
  Company Number: AU-LUNDBECK-DKLU3059698

PATIENT
  Sex: Male

DRUGS (6)
  1. ESCITALOPRAM OXALATE [Suspect]
     Active Substance: ESCITALOPRAM OXALATE
     Indication: Product used for unknown indication
     Dosage: UNK
     Route: 048
  2. LORAZEPAM [Suspect]
     Active Substance: LORAZEPAM
     Indication: Product used for unknown indication
     Dosage: UNK
     Route: 048
  3. MELATONIN [Suspect]
     Active Substance: MELATONIN
     Indication: Product used for unknown indication
     Dosage: UNK
     Route: 048
  4. QUETIAPINE [Suspect]
     Active Substance: QUETIAPINE
     Indication: Product used for unknown indication
     Dosage: UNK
     Route: 048
  5. ZOPICLONE [Suspect]
     Active Substance: ZOPICLONE
     Indication: Product used for unknown indication
     Dosage: UNK
     Route: 048
  6. DIAZEPAM [Suspect]
     Active Substance: DIAZEPAM
     Indication: Product used for unknown indication
     Dosage: UNK
     Route: 048

REACTIONS (15)
  - Acute kidney injury [Recovering/Resolving]
  - Anal incontinence [Recovering/Resolving]
  - Ataxia [Recovering/Resolving]
  - Dysarthria [Recovering/Resolving]
  - False positive investigation result [Recovering/Resolving]
  - Hyperchloraemia [Recovering/Resolving]
  - Hypernatraemia [Recovering/Resolving]
  - Hyperreflexia [Recovering/Resolving]
  - Hypokalaemia [Recovering/Resolving]
  - Metabolic alkalosis [Recovering/Resolving]
  - Methaemoglobinaemia [Recovering/Resolving]
  - Urinary incontinence [Recovering/Resolving]
  - Somnolence [Recovering/Resolving]
  - Suicide attempt [Unknown]
  - Vomiting [Recovering/Resolving]
